FAERS Safety Report 4629173-2 (Version None)
Quarter: 2005Q2

REPORT INFORMATION
  Report Type: 
  Country: None (occurrence: None)
  Receive Date: 20050407
  Receipt Date: 20050331
  Transmission Date: 20051028
  Serious: Yes (Hospitalization)
  Sender: FDA-Public Use
  Company Number: DE-BRISTOL-MYERS SQUIBB COMPANY-12917555

PATIENT
  Age: 53 Year
  Sex: Female

DRUGS (6)
  1. CYCLOPHOSPHAMIDE [Suspect]
     Indication: BREAST CANCER
     Route: 042
     Dates: start: 20050318, end: 20050318
  2. TAXOL [Suspect]
     Indication: BREAST CANCER
     Dosage: START DATE:  07-JAN-2005
     Route: 042
     Dates: start: 20050204, end: 20050204
  3. UROMITEXAN [Suspect]
     Indication: PROPHYLAXIS
     Dosage: ADMINISTERED AS 24-HOUR INFUSION AFTER CHEMOTHERAPY
     Route: 042
     Dates: start: 20050318, end: 20050319
  4. EPIRUBICIN [Suspect]
     Indication: BREAST CANCER
     Dosage: START DATE:  26-NOV-2004
     Route: 042
     Dates: start: 20041223, end: 20041223
  5. PEGFILGRASTIM [Suspect]
     Indication: PROPHYLAXIS
     Route: 058
     Dates: start: 20050319, end: 20050319
  6. EPOGEN [Suspect]
     Indication: ANAEMIA PROPHYLAXIS
     Dosage: LAST ADMINISTERED:  01-APR-2005
     Route: 058
     Dates: start: 20041126, end: 20041126

REACTIONS (1)
  - MENTAL DISORDER [None]
